FAERS Safety Report 6468028-8 (Version None)
Quarter: 2009Q4

REPORT INFORMATION
  Report Type: 
  Country: None (occurrence: None)
  Receive Date: 20091202
  Receipt Date: 20081121
  Transmission Date: 20100525
  Serious: No
  Sender: FDA-Public Use
  Company Number: US-AMGEN-KDL320295

PATIENT
  Sex: Male

DRUGS (2)
  1. ENBREL [Suspect]
     Indication: RHEUMATOID ARTHRITIS
     Route: 058
     Dates: start: 20000301
  2. PLAQUENIL [Concomitant]
     Route: 048
     Dates: start: 20081031

REACTIONS (2)
  - ARTHRALGIA [None]
  - JOINT SWELLING [None]
